FAERS Safety Report 23322374 (Version 1)
Quarter: 2023Q4

REPORT INFORMATION
  Report Type: Spontaneous
  Country: US (occurrence: US)
  Receive Date: 20231220
  Receipt Date: 20231220
  Transmission Date: 20240110
  Serious: No
  Sender: FDA-Public Use
  Company Number: US-PFIZER INC-202200962368

PATIENT
  Age: 84 Year
  Sex: Female

DRUGS (4)
  1. VYNDAMAX [Suspect]
     Active Substance: TAFAMIDIS
     Indication: Cardiac failure
     Dosage: 61 MG, 1X/DAY
     Route: 048
     Dates: start: 20220713
  2. TORSEMIDE [Concomitant]
     Active Substance: TORSEMIDE
     Indication: Oedema
     Dosage: 20 MG, 2X/DAY
     Route: 048
  3. LEVOFLOXACIN [Concomitant]
     Active Substance: LEVOFLOXACIN
     Dosage: 500 MG
  4. ELIQUIS [Concomitant]
     Active Substance: APIXABAN
     Dosage: UNK
     Dates: start: 2023

REACTIONS (2)
  - Drug ineffective [Unknown]
  - Off label use [Unknown]
